FAERS Safety Report 7172718-1 (Version None)
Quarter: 2010Q4

REPORT INFORMATION
  Report Type: 
  Country: None (occurrence: None)
  Receive Date: 20101218
  Receipt Date: 20101213
  Transmission Date: 20110411
  Serious: Yes (Disabling, Other)
  Sender: FDA-Public Use
  Company Number: US-US-EMD SERONO, INC.-7031819

PATIENT
  Sex: Female

DRUGS (1)
  1. REBIF [Suspect]
     Indication: PRODUCT USED FOR UNKNOWN INDICATION
     Route: 058
     Dates: start: 20100126

REACTIONS (5)
  - BLINDNESS UNILATERAL [None]
  - HYPOAESTHESIA [None]
  - MOBILITY DECREASED [None]
  - NERVE INJURY [None]
  - PAIN IN EXTREMITY [None]
